FAERS Safety Report 24174126 (Version 1)
Quarter: 2024Q3

REPORT INFORMATION
  Report Type: Spontaneous
  Country: FR (occurrence: None)
  Receive Date: 20240805
  Receipt Date: 20240805
  Transmission Date: 20241017
  Serious: Yes (Hospitalization)
  Sender: ASTRAZENECA
  Company Number: 2024A176563

PATIENT
  Age: 21 Year
  Sex: Male

DRUGS (6)
  1. QUETIAPINE [Suspect]
     Active Substance: QUETIAPINE
     Dosage: QUETIAPINE 300MG TABLETS- 6 TABLETS
     Route: 048
     Dates: start: 20240614, end: 20240614
  2. LOXAPINE [Suspect]
     Active Substance: LOXAPINE
     Dosage: 3 TABLETS
     Route: 048
     Dates: start: 20240614, end: 20240614
  3. ALCOHOL [Suspect]
     Active Substance: ALCOHOL
     Dosage: 1/2 BOTTLE VODKA AND 2X33CL BEER
     Route: 048
     Dates: start: 20240614, end: 20240614
  4. CANNABIS SATIVA SUBSP. INDICA TOP [Suspect]
     Active Substance: CANNABIS SATIVA SUBSP. INDICA TOP
     Route: 055
  5. TOBACCO LEAF [Suspect]
     Active Substance: TOBACCO LEAF
     Route: 055
  6. DEPAKOTE [Suspect]
     Active Substance: DIVALPROEX SODIUM
     Dosage: 1-0-1

REACTIONS (11)
  - Suicidal ideation [Not Recovered/Not Resolved]
  - Toxicity to various agents [Recovered/Resolved]
  - Agitation [Recovering/Resolving]
  - Depressed mood [Not Recovered/Not Resolved]
  - Drug abuse [Not Recovered/Not Resolved]
  - Coma scale abnormal [Recovered/Resolved]
  - Personality disorder [Unknown]
  - Impulsive behaviour [Unknown]
  - Speech disorder [Unknown]
  - Weight decreased [Unknown]
  - Depression [Unknown]

NARRATIVE: CASE EVENT DATE: 20240614
